FAERS Safety Report 5316129-X (Version None)
Quarter: 2007Q2

REPORT INFORMATION
  Report Type: 
  Country: None (occurrence: None)
  Receive Date: 20070503
  Receipt Date: 20070423
  Transmission Date: 20071010
  Serious: Yes (Hospitalization)
  Sender: FDA-Public Use
  Company Number: NL-ELI_LILLY_AND_COMPANY-NL200702004490

PATIENT
  Age: 83 Year
  Sex: Female

DRUGS (3)
  1. CYMBALTA [Suspect]
     Indication: DEPRESSION
     Dosage: 60 MG, UNK
     Dates: start: 20070205
  2. ZOLPIDEM TARTRATE [Concomitant]
     Dosage: 5 MG, UNK
  3. MIRTAZAPINE [Concomitant]
     Dates: end: 20070101

REACTIONS (5)
  - CONCUSSION [None]
  - DIZZINESS [None]
  - FALL [None]
  - HYPOKALAEMIA [None]
  - MALAISE [None]
